FAERS Safety Report 8339563-2 (Version None)
Quarter: 2012Q2

REPORT INFORMATION
  Report Type: 
  Country: None (occurrence: None)
  Receive Date: 20120507
  Receipt Date: 20120501
  Transmission Date: 20120825
  Serious: Yes (Hospitalization)
  Sender: FDA-Public Use
  Company Number: PHEH2012US009380

PATIENT
  Sex: Male

DRUGS (3)
  1. SANDOSTATIN [Suspect]
     Dosage: 0.03 MG, UNK
  2. AFINITOR [Concomitant]
  3. SANDOSTATIN [Suspect]
     Indication: NEUROENDOCRINE TUMOUR
     Dosage: 0.1 MG, UNK

REACTIONS (4)
  - NAUSEA [None]
  - VOMITING [None]
  - CONSTIPATION [None]
  - BEDRIDDEN [None]
